FAERS Safety Report 7051241-9 (Version None)
Quarter: 2010Q4

REPORT INFORMATION
  Report Type: 
  Country: None (occurrence: None)
  Receive Date: 20101012
  Receipt Date: 20100923
  Transmission Date: 20110411
  Serious: Yes (Life-Threatening, Other)
  Sender: FDA-Public Use
  Company Number: ACO_02352_2010

PATIENT
  Sex: Female

DRUGS (3)
  1. AMPYRA [Suspect]
     Indication: MULTIPLE SCLEROSIS
     Dosage: (10 MG BID ORAL)
     Route: 048
     Dates: start: 20100901
  2. NORVASC [Concomitant]
  3. NORCO [Concomitant]

REACTIONS (5)
  - BALANCE DISORDER [None]
  - DEPRESSION [None]
  - FATIGUE [None]
  - PAIN [None]
  - SUICIDAL IDEATION [None]
